FAERS Safety Report 9414884 (Version 3)
Quarter: 2013Q4

REPORT INFORMATION
  Report Type: Spontaneous
  Country: DE (occurrence: DE)
  Receive Date: 20130723
  Receipt Date: 20131105
  Transmission Date: 20140711
  Serious: Yes (Life-Threatening, Hospitalization)
  Sender: FDA-Public Use
  Company Number: DE-JNJFOC-20130712351

PATIENT
  Age: 45 Year
  Sex: Male
  Weight: 85 kg

DRUGS (1)
  1. STELARA [Suspect]
     Indication: PSORIASIS
     Dosage: RECEIVED 5 INJECTIONS BEFORE THE REACTION OCCURRED
     Route: 058
     Dates: start: 20130307

REACTIONS (2)
  - Abscess neck [Recovered/Resolved]
  - Dyspnoea [Recovered/Resolved]
